FAERS Safety Report 14577451 (Version 1)
Quarter: 2018Q1

REPORT INFORMATION
  Report Type: Spontaneous
  Country: US (occurrence: US)
  Receive Date: 20180226
  Receipt Date: 20180226
  Transmission Date: 20180509
  Serious: No
  Sender: FDA-Public Use
  Company Number: None

PATIENT
  Age: 81 Year
  Sex: Female

DRUGS (1)
  1. HYOSCYAMINE SL [Suspect]
     Active Substance: HYOSCYAMINE SULFATE
     Route: 060

REACTIONS (2)
  - Disease recurrence [None]
  - Product substitution issue [None]
